FAERS Safety Report 10697484 (Version 1)
Quarter: 2015Q1

REPORT INFORMATION
  Report Type: Spontaneous
  Country: FR (occurrence: None)
  Receive Date: 20150106
  Receipt Date: 20150106
  Transmission Date: 20150721
  Serious: Yes (Death)
  Sender: FDA-Public Use
  Company Number: 8003828

PATIENT
  Age: 52 Year
  Sex: Female

DRUGS (2)
  1. GLIVEC [Suspect]
     Active Substance: IMATINIB MESYLATE
     Indication: GASTROINTESTINAL STROMAL TUMOUR
     Dosage: 400 MG (400 MG, 1 IN 1 D), ORAL
     Route: 048
     Dates: start: 20140828, end: 20141203
  2. LEVOTHYROX 125 (LEVOTHYROXINE SODIUM) (125 MICROGRAM, TABLET) (LEVOTHYROXINE SODIUM)? [Suspect]
     Active Substance: LEVOTHYROXINE
     Indication: THYROID DISORDER
     Dosage: SCORED TABLET (12.5 MCG, 1 IN 1 D), ORAL
     Route: 048
     Dates: start: 20141015, end: 20141203

REACTIONS (3)
  - Haemorrhagic stroke [None]
  - Brain herniation [None]
  - Cerebral haematoma [None]

NARRATIVE: CASE EVENT DATE: 20141203
